FAERS Safety Report 8916391 (Version 2)
Quarter: 2013Q1

REPORT INFORMATION
  Report Type: Spontaneous
  Country: US (occurrence: US)
  Receive Date: 20121120
  Receipt Date: 20130114
  Transmission Date: 20140127
  Serious: Yes (Life-Threatening, Hospitalization)
  Sender: FDA-Public Use
  Company Number: US-B.I. PHARMACEUTICALS,INC./RIDGEFIELD-2012-BI-00405BP

PATIENT
  Age: 84 None
  Sex: Female

DRUGS (1)
  1. PRADAXA [Suspect]
     Indication: TRANSIENT ISCHAEMIC ATTACK
     Dosage: 300 MG
     Route: 048
     Dates: start: 20120412

REACTIONS (3)
  - Transient ischaemic attack [Recovered/Resolved]
  - Diarrhoea [Not Recovered/Not Resolved]
  - Transient ischaemic attack [Recovered/Resolved]
